FAERS Safety Report 10414721 (Version 1)
Quarter: 2014Q3

REPORT INFORMATION
  Report Type: Spontaneous
  Country: US (occurrence: None)
  Receive Date: 20140827
  Receipt Date: 20140827
  Transmission Date: 20150326
  Serious: Yes (Hospitalization)
  Sender: FDA-Public Use
  Company Number: None

PATIENT
  Age: 66 Year
  Sex: Male
  Weight: 84.5 kg

DRUGS (1)
  1. SUTENT [Suspect]
     Active Substance: SUNITINIB MALATE
     Dates: end: 20140615

REACTIONS (3)
  - Renal cancer [None]
  - General physical condition abnormal [None]
  - Malignant neoplasm progression [None]

NARRATIVE: CASE EVENT DATE: 20140616
